FAERS Safety Report 17980748 (Version 1)
Quarter: 2020Q3

REPORT INFORMATION
  Report Type: Spontaneous
  Country: FR (occurrence: FR)
  Receive Date: 20200704
  Receipt Date: 20200704
  Transmission Date: 20201103
  Serious: Yes (Life-Threatening, Hospitalization)
  Sender: FDA-Public Use
  Company Number: FR-ROCHE-2634552

PATIENT
  Age: 53 Year
  Sex: Female
  Weight: 63 kg

DRUGS (4)
  1. THERALENE [Interacting]
     Active Substance: TRIMEPRAZINE
     Indication: SUICIDE ATTEMPT
     Route: 048
     Dates: start: 20200525
  2. LAROXYL [Interacting]
     Active Substance: AMITRIPTYLINE HYDROCHLORIDE
     Indication: SUICIDE ATTEMPT
     Route: 048
     Dates: start: 20200525
  3. RIVOTRIL [Suspect]
     Active Substance: CLONAZEPAM
     Indication: SUICIDE ATTEMPT
     Route: 048
     Dates: start: 20200525
  4. STILNOX [Interacting]
     Active Substance: ZOLPIDEM TARTRATE
     Indication: SUICIDE ATTEMPT
     Route: 048
     Dates: start: 20200525

REACTIONS (3)
  - Coma [Recovered/Resolved]
  - Hypoxia [Recovered/Resolved]
  - Intentional overdose [Unknown]

NARRATIVE: CASE EVENT DATE: 20200525
